FAERS Safety Report 10405567 (Version 1)
Quarter: 2014Q3

REPORT INFORMATION
  Report Type: Spontaneous
  Country: US (occurrence: None)
  Receive Date: 20140821
  Receipt Date: 20140821
  Transmission Date: 20150326
  Serious: Yes (Death)
  Sender: FDA-Public Use
  Company Number: US-MDCO-14-00191

PATIENT
  Age: 62 Year
  Sex: Female
  Weight: 84 kg

DRUGS (28)
  1. ATORVASTATIN (ATORVASTATIN) (ATORVASTATIN) [Concomitant]
     Active Substance: ATORVASTATIN
  2. INSULIN GLARGINE (INSULIN GLARGINE) (INJECTION) (INSULIN GLARGINE) [Concomitant]
  3. LISINOPRIL (LISINOPRIL) (LISINOPRIL) [Concomitant]
     Active Substance: LISINOPRIL
  4. TRAMADOL (TRAMADOL) (TRAMADOL) [Concomitant]
     Active Substance: TRAMADOL
  5. INSULIN LISPRO (INSULIN LISPRO) (INSULIN LISPRO) [Concomitant]
  6. NEPHROCAPS (SOLIVITO N ) (ASCORBIC ACID, PYRIDOXINE HYDROCHLORIDE, BIOTIN, FOLIC ACID, THIAMINE HYDROCHLORIDE, CYANOCOBALAMIN, PANTOTHENIC ACID, RIBOFLAVIN, NITCOTINAMIDE) [Concomitant]
  7. SODIUM CHLORIDE (SODIUM CHLORIDE) (SODIUM CHLORIDE) [Concomitant]
  8. MEGESTROL (MEGESTROL) (MEGESTROL) [Concomitant]
  9. EPOPROSTENOL (EPOPROSTENOL) (EPOPROSTENOL) [Concomitant]
  10. OXYGEN (OXYGEN) (OXYGEN) [Concomitant]
  11. ZINC SULFATE (ZINC SULFATE) (ZINC SULFATE) [Concomitant]
  12. GUAIFENESIN (GUAIFENESIN) (SOLUTION) (GUAIFENESIN) [Concomitant]
  13. ANGIOMAX [Suspect]
     Active Substance: BIVALIRUDIN
     Indication: THROMBOSIS PROPHYLAXIS
     Route: 041
     Dates: start: 20140302, end: 20140305
  14. ALBUTEROL (SALBUTAMOL) (INHALANT) (SALBUTAMOL) [Concomitant]
  15. METOPROLOL (METOPROLOL) (METOPROLOL) [Concomitant]
     Active Substance: METOPROLOL
  16. ASPIRIN (ACETYLSALICYLIC ACID) (ACETYLSALICYLIC ACID) [Concomitant]
     Active Substance: ASPIRIN
  17. WARFARIN (WARFARIN) (WARFARIN) [Concomitant]
     Active Substance: WARFARIN
  18. POTASSIUM CHLORIDE (POTASSIUM CHLORIDE) (POTASSIUM CHLORIDE) [Concomitant]
     Active Substance: POTASSIUM CHLORIDE
  19. DEXTROSE (GLUCOSE) (GLUCOSE) [Concomitant]
  20. OMEPRAZOLE SR (OMEPRAZOLE) (OMEPRAZOLE) [Concomitant]
  21. FERROUS SULFATE (FERROUS SULFATE) (FERROUS SULFATE) [Concomitant]
  22. MORPHINE (MORPHINE) (MORPHINE) [Concomitant]
     Active Substance: MORPHINE
  23. MIDAZOLAM [Concomitant]
     Active Substance: MIDAZOLAM\MIDAZOLAM HYDROCHLORIDE
  24. HEPARIN (HEPARIN) (HEPARIN) [Concomitant]
  25. PROPOFOL (PROPOFOL) (PROPOFOL) [Concomitant]
  26. IPRATROPIUM (IPRATROPIUM) (IPRATROPIUM) [Concomitant]
  27. CARBAMAZEPINE (CARBAMAZEPINE) (CARBAMAZEPINE) [Concomitant]
     Active Substance: CARBAMAZEPINE
  28. BUMETANIDE (BUMETANIDE) (BUMETANIDE) [Concomitant]

REACTIONS (5)
  - Gastric varices haemorrhage [None]
  - Splenomegaly [None]
  - Pulmonary embolism [None]
  - Deep vein thrombosis [None]
  - Gastrointestinal haemorrhage [None]

NARRATIVE: CASE EVENT DATE: 20140304
